FAERS Safety Report 12637159 (Version 1)
Quarter: 2016Q3

REPORT INFORMATION
  Report Type: Spontaneous
  Country: US (occurrence: US)
  Receive Date: 20160809
  Receipt Date: 20160809
  Transmission Date: 20161109
  Serious: No
  Sender: FDA-Public Use
  Company Number: US-BEH-2015053535

PATIENT
  Sex: Female
  Weight: 47 kg

DRUGS (19)
  1. ZOFRAN [Concomitant]
     Active Substance: ONDANSETRON HYDROCHLORIDE
  2. PRIVIGEN [Suspect]
     Active Substance: HUMAN IMMUNOGLOBULIN G
     Indication: ENCEPHALOMYELITIS
     Dosage: 40 GM VIAL; 100 GM AS DIRECTED
     Route: 042
  3. NORMAL SALINE [Concomitant]
     Active Substance: SODIUM CHLORIDE
  4. TRIHEXYPHENODYL [Concomitant]
  5. MULTIVITAMIN MINERAL [Concomitant]
  6. PRIVIGEN [Suspect]
     Active Substance: HUMAN IMMUNOGLOBULIN G
     Indication: PRODUCT USED FOR UNKNOWN INDICATION
     Dosage: 40 GM VIAL; 100 GM AS DIRECTED
     Route: 042
  7. ACETAMINOPHEN. [Concomitant]
     Active Substance: ACETAMINOPHEN
  8. DIPHENHYDRAMINE. [Concomitant]
     Active Substance: DIPHENHYDRAMINE
  9. CLARITHROMYCIN. [Concomitant]
     Active Substance: CLARITHROMYCIN
  10. PRIVIGEN [Suspect]
     Active Substance: HUMAN IMMUNOGLOBULIN G
     Indication: PRODUCT USED FOR UNKNOWN INDICATION
     Dosage: 10 GM VIAL; 100 GM AS DIRECTED
     Route: 042
  11. TORADOL [Concomitant]
     Active Substance: KETOROLAC TROMETHAMINE
  12. SODIUM CHLORIDE. [Concomitant]
     Active Substance: SODIUM CHLORIDE
  13. EPIPEN [Concomitant]
     Active Substance: EPINEPHRINE
     Indication: ANAPHYLACTIC REACTION
  14. NYSTATIN. [Concomitant]
     Active Substance: NYSTATIN
  15. L-GLUTAMINE [Concomitant]
  16. ULTIMATE [Concomitant]
     Active Substance: CHLOROXYLENOL
  17. DEXTROSE. [Concomitant]
     Active Substance: DEXTROSE
  18. OMEGA [Concomitant]
     Active Substance: CONVALLARIA MAJALIS\CRATAEGUS LAEVIGATA LEAF\PROXYPHYLLINE
  19. AMOX TR-K CLV [Concomitant]
     Active Substance: AMOXICILLIN\CLAVULANATE POTASSIUM

REACTIONS (1)
  - Migraine [Unknown]
